FAERS Safety Report 5948730-4 (Version None)
Quarter: 2008Q4

REPORT INFORMATION
  Report Type: 
  Country: None (occurrence: None)
  Receive Date: 20081107
  Receipt Date: 20081030
  Transmission Date: 20090506
  Serious: No
  Sender: FDA-Public Use
  Company Number: US024958

PATIENT
  Age: 45 Year
  Sex: Male
  Weight: 81.6475 kg

DRUGS (4)
  1. FENTORA [Suspect]
     Indication: BACK PAIN
     Dosage: 200 UG TWO TO FOUR TABLETS/DAY BUCCAL
     Route: 002
     Dates: start: 20070401
  2. NORCO [Concomitant]
  3. CYMBALTA [Concomitant]
  4. DEPAKOTE [Concomitant]

REACTIONS (5)
  - ABDOMINAL PAIN UPPER [None]
  - DRUG INEFFECTIVE [None]
  - DRUG PRESCRIBING ERROR [None]
  - POOR QUALITY DRUG ADMINISTERED [None]
  - PRODUCT QUALITY ISSUE [None]
